FAERS Safety Report 24546780 (Version 3)
Quarter: 2024Q4

REPORT INFORMATION
  Report Type: Spontaneous
  Country: JP (occurrence: JP)
  Receive Date: 20241024
  Receipt Date: 20241118
  Transmission Date: 20250115
  Serious: No
  Sender: ARGENX BVBA
  Company Number: JP-ARGENX-2024-ARGX-JP009100AA

PATIENT

DRUGS (1)
  1. EFGARTIGIMOD ALFA\HYALURONIDASE-QVFC [Suspect]
     Active Substance: EFGARTIGIMOD ALFA\HYALURONIDASE-QVFC
     Indication: Myasthenia gravis
     Dosage: UNK
     Route: 058
     Dates: start: 20240912

REACTIONS (3)
  - Pyrexia [Unknown]
  - Asthenia [Unknown]
  - Tooth infection [Unknown]
